FAERS Safety Report 6829703-6 (Version None)
Quarter: 2010Q3

REPORT INFORMATION
  Report Type: 
  Country: None (occurrence: None)
  Receive Date: 20100706
  Receipt Date: 20100617
  Transmission Date: 20110219
  Serious: Yes (Other)
  Sender: FDA-Public Use
  Company Number: ACO_00813_2010

PATIENT
  Age: 67 Year
  Sex: Male

DRUGS (1)
  1. AMPYRA [Suspect]
     Indication: MULTIPLE SCLEROSIS
     Dosage: 10 MG  BID ORAL
     Route: 048
     Dates: start: 20100419, end: 20100510

REACTIONS (3)
  - ABDOMINAL PAIN [None]
  - MUSCLE SPASTICITY [None]
  - URINARY TRACT INFECTION [None]
